FAERS Safety Report 7758827-4 (Version None)
Quarter: 2011Q3

REPORT INFORMATION
  Report Type: 
  Country: None (occurrence: None)
  Receive Date: 20110916
  Receipt Date: 20110916
  Transmission Date: 20111222
  Serious: Yes (Other)
  Sender: FDA-Public Use
  Company Number: None

PATIENT
  Sex: Male
  Weight: 82.5547 kg

DRUGS (3)
  1. CYMBALTA [Suspect]
     Indication: DEPRESSION
     Dosage: P.O. Q DAY ON AND OFF SINCE JULY 2011
     Route: 048
     Dates: start: 20110701
  2. CYMBALTA [Suspect]
     Indication: PAIN
     Dosage: P.O. Q DAY ON AND OFF SINCE JULY 2011
     Route: 048
     Dates: start: 20110701
  3. AMBIEN [Concomitant]

REACTIONS (4)
  - ASTHENIA [None]
  - COORDINATION ABNORMAL [None]
  - CONFUSIONAL STATE [None]
  - FATIGUE [None]
